FAERS Safety Report 10399327 (Version 2)
Quarter: 2018Q1

REPORT INFORMATION
  Report Type: Report from Study
  Country: None (occurrence: DE)
  Receive Date: 20140821
  Receipt Date: 20180131
  Transmission Date: 20180508
  Serious: Yes (Hospitalization, Other)
  Sender: FDA-Public Use
  Company Number: DE-ABBVIE-14P-062-1272962-00

PATIENT
  Age: 37 Year
  Sex: Male
  Weight: 60 kg

DRUGS (5)
  1. METOPROLOL. [Concomitant]
     Active Substance: METOPROLOL
     Indication: PRODUCT USED FOR UNKNOWN INDICATION
  2. PANTOPRAZOLE [Concomitant]
     Active Substance: PANTOPRAZOLE
     Indication: PRODUCT USED FOR UNKNOWN INDICATION
  3. HUMIRA [Suspect]
     Active Substance: ADALIMUMAB
     Indication: CROHN^S DISEASE
     Route: 058
     Dates: start: 2007
  4. MESALAZINE [Concomitant]
     Active Substance: MESALAMINE
     Indication: PRODUCT USED FOR UNKNOWN INDICATION
  5. MESALAZINE [Concomitant]
     Active Substance: MESALAMINE

REACTIONS (21)
  - Nausea [Recovered/Resolved]
  - Jejunostomy [Unknown]
  - Ventricular fibrillation [Recovered/Resolved]
  - Anastomotic ulcer [Unknown]
  - Abdominal pain lower [Recovered/Resolved]
  - Hypertrophic anal papilla [Unknown]
  - Intestinal haemorrhage [Recovered/Resolved]
  - Haematochezia [Recovered/Resolved]
  - Diarrhoea [Recovered/Resolved]
  - Laparotomy [Unknown]
  - Iron deficiency anaemia [Not Recovered/Not Resolved]
  - Diarrhoea [Recovered/Resolved]
  - Small intestinal stenosis [Recovered/Resolved]
  - Stricturoplasty [Unknown]
  - Device dislocation [Unknown]
  - Nausea [Recovered/Resolved]
  - General physical health deterioration [Recovered/Resolved]
  - Adhesiolysis [Recovered/Resolved]
  - Coronary artery disease [Unknown]
  - Gastroenteritis [Recovered/Resolved]
  - Crohn^s disease [Unknown]

NARRATIVE: CASE EVENT DATE: 20090218
